FAERS Safety Report 12973215 (Version 1)
Quarter: 2016Q4

REPORT INFORMATION
  Report Type: Spontaneous
  Country: FR (occurrence: FR)
  Receive Date: 20161124
  Receipt Date: 20161124
  Transmission Date: 20170207
  Serious: Yes (Other)
  Sender: FDA-Public Use
  Company Number: PHHY2016FR159254

PATIENT
  Age: 2 Month
  Sex: Male

DRUGS (6)
  1. ALENDRONATE [Suspect]
     Active Substance: ALENDRONATE SODIUM
     Indication: FOETAL EXPOSURE DURING PREGNANCY
     Route: 064
  2. ESOMEPRAZOLE [Suspect]
     Active Substance: ESOMEPRAZOLE
     Dosage: 1 MG/KG, QD
     Route: 065
  3. ESOMEPRAZOLE [Suspect]
     Active Substance: ESOMEPRAZOLE
     Indication: REFLUX GASTRITIS
     Route: 065
  4. SODIUM ALGINATE [Suspect]
     Active Substance: SODIUM ALGINATE
     Indication: REFLUX GASTRITIS
     Route: 065
  5. GAVISCON [Suspect]
     Active Substance: ALUMINUM HYDROXIDE\MAGNESIUM CARBONATE
     Indication: REFLUX GASTRITIS
     Route: 065
  6. ESOMEPRAZOLE [Suspect]
     Active Substance: ESOMEPRAZOLE
     Dosage: 2 MG/KG, QD, FROM DAY 64
     Route: 065

REACTIONS (4)
  - Foetal exposure during pregnancy [Unknown]
  - Craniotabes [Recovered/Resolved]
  - Premature baby [Unknown]
  - Hypophosphataemic rickets [Recovered/Resolved]
